FAERS Safety Report 6183625-5 (Version None)
Quarter: 2009Q2

REPORT INFORMATION
  Report Type: 
  Country: None (occurrence: None)
  Receive Date: 20090508
  Receipt Date: 20090429
  Transmission Date: 20091009
  Serious: Yes (Other)
  Sender: FDA-Public Use
  Company Number: DE-JNJFOC-20090303550

PATIENT
  Sex: Female

DRUGS (6)
  1. DOXORUBICIN HCL [Suspect]
     Route: 042
  2. DOXORUBICIN HCL [Suspect]
     Indication: BREAST CANCER
     Route: 042
  3. MITOMYCIN [Suspect]
     Route: 065
  4. MITOMYCIN [Suspect]
     Indication: BREAST CANCER
     Route: 065
  5. FLUOROURACIL [Suspect]
     Route: 065
  6. FLUOROURACIL [Suspect]
     Indication: BREAST CANCER
     Route: 065

REACTIONS (10)
  - ALOPECIA [None]
  - BONE PAIN [None]
  - BRONCHITIS [None]
  - FATIGUE [None]
  - GASTRITIS [None]
  - GASTROINTESTINAL DISORDER [None]
  - GLOSSITIS [None]
  - OEDEMA PERIPHERAL [None]
  - OESOPHAGITIS [None]
  - SINUSITIS [None]
